FAERS Safety Report 10445716 (Version 12)
Quarter: 2019Q2

REPORT INFORMATION
  Report Type: Report from Study
  Country: US (occurrence: US)
  Receive Date: 20140910
  Receipt Date: 20190625
  Transmission Date: 20190711
  Serious: Yes (Hospitalization, Other)
  Sender: FDA-Public Use
  Company Number: US-SA-2014SA122754

PATIENT
  Age: 57 Year
  Sex: Female

DRUGS (3)
  1. TERIFLUNOMIDE. [Suspect]
     Active Substance: TERIFLUNOMIDE
     Dosage: 14 MG,QD
     Route: 048
  2. TERIFLUNOMIDE. [Suspect]
     Active Substance: TERIFLUNOMIDE
     Dosage: 7 MG,QD
     Route: 048
     Dates: start: 201605, end: 201905
  3. TERIFLUNOMIDE. [Suspect]
     Active Substance: TERIFLUNOMIDE
     Indication: MULTIPLE SCLEROSIS
     Dosage: 14 MG,QD
     Route: 048
     Dates: start: 20140823

REACTIONS (16)
  - Loss of consciousness [Recovered/Resolved]
  - Lower limb fracture [Unknown]
  - Fall [Unknown]
  - Head injury [Recovered/Resolved]
  - Incorrect dose administered [Unknown]
  - Muscular weakness [Recovered/Resolved]
  - Fall [Recovered/Resolved]
  - Alopecia [Recovered/Resolved]
  - Limb injury [Recovered/Resolved]
  - Product dose omission [Unknown]
  - Impaired driving ability [Unknown]
  - Hypoaesthesia [Recovered/Resolved]
  - Transient ischaemic attack [Unknown]
  - Dizziness [Recovered/Resolved]
  - Cast application [Unknown]
  - Product use issue [Unknown]

NARRATIVE: CASE EVENT DATE: 201507
